FAERS Safety Report 18125682 (Version 1)
Quarter: 2020Q3

REPORT INFORMATION
  Report Type: Spontaneous
  Country: CN (occurrence: CN)
  Receive Date: 20200807
  Receipt Date: 20200807
  Transmission Date: 20201103
  Serious: Yes (Death)
  Sender: FDA-Public Use
  Company Number: CN-ROCHE-2654958

PATIENT
  Age: 33 Year
  Sex: Male

DRUGS (19)
  1. CETUXIMAB. [Suspect]
     Active Substance: CETUXIMAB
     Route: 065
     Dates: start: 20180701
  2. OXALIPLATIN. [Concomitant]
     Active Substance: OXALIPLATIN
     Dates: start: 201706, end: 20170929
  3. IRINOTECAN [Concomitant]
     Active Substance: IRINOTECAN
     Dates: start: 20180701
  4. CETUXIMAB. [Suspect]
     Active Substance: CETUXIMAB
     Indication: RECTAL CANCER
     Route: 065
     Dates: start: 20180208
  5. TEGAFUR GIMERACIL AND OTERACIL POTASSIUM [Suspect]
     Active Substance: GIMERACIL\OTERACIL\TEGAFUR
     Indication: RECTAL CANCER
     Dosage: NOV 2016 AND DEC 2016
     Route: 065
  6. 5?FLUOROURACIL [Concomitant]
     Active Substance: FLUOROURACIL
     Indication: RECTAL CANCER
     Dates: start: 20160401
  7. 5?FLUOROURACIL [Concomitant]
     Active Substance: FLUOROURACIL
     Dosage: MFOLFOX6 REGIMEN
     Dates: start: 20160701
  8. IRINOTECAN [Concomitant]
     Active Substance: IRINOTECAN
     Dates: start: 20180611, end: 20180730
  9. OXALIPLATIN. [Concomitant]
     Active Substance: OXALIPLATIN
     Dosage: MFOLFOX6 REGIMEN
     Dates: start: 20160701
  10. XELODA [Suspect]
     Active Substance: CAPECITABINE
     Indication: RECTAL CANCER
     Route: 048
     Dates: start: 2014
  11. CETUXIMAB. [Suspect]
     Active Substance: CETUXIMAB
     Route: 065
     Dates: start: 20180611, end: 20180730
  12. TEGAFUR GIMERACIL AND OTERACIL POTASSIUM [Suspect]
     Active Substance: GIMERACIL\OTERACIL\TEGAFUR
     Route: 065
     Dates: start: 201706, end: 20170929
  13. REGORAFENIB. [Concomitant]
     Active Substance: REGORAFENIB
     Indication: RECTAL CANCER
     Route: 048
     Dates: start: 20180201
  14. OXALIPLATIN. [Concomitant]
     Active Substance: OXALIPLATIN
     Indication: RECTAL CANCER
     Dosage: CAPEOX REGIMEN
     Dates: start: 20140101
  15. CALCIUM FOLINATE [Concomitant]
     Active Substance: LEUCOVORIN CALCIUM
     Indication: RECTAL CANCER
     Dates: start: 20160401
  16. AVASTIN [Suspect]
     Active Substance: BEVACIZUMAB
     Indication: RECTAL CANCER
     Route: 065
     Dates: start: 201706, end: 20170929
  17. IRINOTECAN [Concomitant]
     Active Substance: IRINOTECAN
     Indication: RECTAL CANCER
     Dates: start: 20160401
  18. XELODA [Suspect]
     Active Substance: CAPECITABINE
     Dosage: CAPEOX REGIMEN
     Route: 065
     Dates: start: 2014
  19. CALCIUM FOLINATE [Concomitant]
     Active Substance: LEUCOVORIN CALCIUM
     Dosage: MFOLFOX6 REGIMEN
     Dates: start: 20160701

REACTIONS (3)
  - Palmar-plantar erythrodysaesthesia syndrome [Unknown]
  - Dysphonia [Unknown]
  - Death [Fatal]

NARRATIVE: CASE EVENT DATE: 2018
